FAERS Safety Report 11246569 (Version 1)
Quarter: 2015Q3

REPORT INFORMATION
  Report Type: Report from Study
  Country: US (occurrence: None)
  Receive Date: 20150706
  Receipt Date: 20150706
  Transmission Date: 20151125
  Serious: Yes (Hospitalization, Other)
  Sender: FDA-Public Use
  Company Number: CO-LA-US-2015-020

PATIENT
  Age: 64 Year
  Sex: Male
  Weight: 103.01 kg

DRUGS (5)
  1. LANOXIN [Suspect]
     Active Substance: DIGOXIN
     Indication: VENTRICULAR TACHYCARDIA
     Route: 042
     Dates: start: 20150524, end: 20150524
  2. LOSMAPIMOD VS PLACEBO [Suspect]
     Active Substance: LOSMAPIMOD
     Indication: ACUTE CORONARY SYNDROME
     Route: 048
     Dates: start: 20150514, end: 20150528
  3. DILTIAZEM HYDROCHLORIDE. [Suspect]
     Active Substance: DILTIAZEM HYDROCHLORIDE
     Indication: CARDIAC FAILURE
     Dosage: CO, INTRAVENOUS
     Route: 042
     Dates: start: 20150525, end: 20150526
  4. PRIMACOR [Suspect]
     Active Substance: MILRINONE LACTATE
     Indication: VENTRICULAR TACHYCARDIA
     Dosage: CO, INTRAVENOUS
     Route: 042
     Dates: start: 20150524, end: 20150527
  5. AMIODARONE HYDROCHLORIDE. [Suspect]
     Active Substance: AMIODARONE HYDROCHLORIDE
     Indication: ATRIAL FIBRILLATION
     Route: 048
     Dates: start: 20150522, end: 20150527

REACTIONS (12)
  - Blood magnesium decreased [None]
  - Ischaemic cardiomyopathy [None]
  - Atrial fibrillation [None]
  - Blood calcium decreased [None]
  - Respiratory failure [None]
  - Ventricular fibrillation [None]
  - Ventricular tachycardia [None]
  - Cardiac arrest [None]
  - PO2 decreased [None]
  - PO2 increased [None]
  - Platelet count decreased [None]
  - Torsade de pointes [None]

NARRATIVE: CASE EVENT DATE: 20150522
